FAERS Safety Report 8605915-6 (Version None)
Quarter: 2012Q3

REPORT INFORMATION
  Report Type: 
  Country: None (occurrence: None)
  Receive Date: 20120820
  Receipt Date: 20120806
  Transmission Date: 20120928
  Serious: Yes (Other)
  Sender: FDA-Public Use
  Company Number: US-ROCHE-1098117

PATIENT
  Sex: Male

DRUGS (1)
  1. AVASTIN [Suspect]
     Indication: PRODUCT USED FOR UNKNOWN INDICATION

REACTIONS (9)
  - MUSCULAR WEAKNESS [None]
  - BALANCE DISORDER [None]
  - HEADACHE [None]
  - EPISTAXIS [None]
  - FACIAL PARESIS [None]
  - CEREBROVASCULAR ACCIDENT [None]
  - HAEMORRHAGE [None]
  - DEPRESSION [None]
  - EMBOLISM VENOUS [None]
